FAERS Safety Report 17198498 (Version 1)
Quarter: 2019Q4

REPORT INFORMATION
  Report Type: Spontaneous
  Country: SE (occurrence: SE)
  Receive Date: 20191225
  Receipt Date: 20191225
  Transmission Date: 20200122
  Serious: Yes (Hospitalization)
  Sender: FDA-Public Use
  Company Number: SE-TEVA-2019-SE-1157178

PATIENT
  Age: 17 Year
  Sex: Male
  Weight: 50 kg

DRUGS (3)
  1. IBUPROFEN. [Suspect]
     Active Substance: IBUPROFEN
     Dosage: 20 ST ? 400 MG
     Route: 065
     Dates: start: 20180419, end: 20180419
  2. PROPAVAN [Suspect]
     Active Substance: PROPIOMAZINE
     Dosage: 20 ST
     Route: 048
     Dates: start: 20180419, end: 20180419
  3. ATARAX [Suspect]
     Active Substance: HYDROXYZINE HYDROCHLORIDE
     Dosage: CA 20 ST
     Dates: start: 20180419, end: 20180419

REACTIONS (2)
  - Intentional self-injury [Unknown]
  - Intentional overdose [Unknown]

NARRATIVE: CASE EVENT DATE: 20180419
